FAERS Safety Report 19913779 (Version 1)
Quarter: 2021Q4

REPORT INFORMATION
  Report Type: Spontaneous
  Country: DE (occurrence: DE)
  Receive Date: 20211004
  Receipt Date: 20211004
  Transmission Date: 20220303
  Serious: Yes (Hospitalization, Other)
  Sender: FDA-Public Use
  Company Number: None

PATIENT
  Age: 27 Year
  Sex: Female
  Weight: 100 kg

DRUGS (6)
  1. CLOZAPINE [Suspect]
     Active Substance: CLOZAPINE
     Indication: Product used for unknown indication
     Dosage: 500 MILLIGRAM, QD
     Dates: start: 20210202
  2. CLOZAPINE [Suspect]
     Active Substance: CLOZAPINE
     Dosage: 150 MILLIGRAM, BID(150 MG - 0- 150 MG)
     Route: 048
     Dates: start: 2020, end: 20210209
  3. OLANZAPINE [Concomitant]
     Active Substance: OLANZAPINE
     Dosage: 5 MILLIGRAM, QD(0-0-5MG LANGFRISTIG)
     Route: 048
  4. CHLORPROTHIXENE [Concomitant]
     Active Substance: CHLORPROTHIXENE
     Dosage: UNK(BEDARFSMEDIKATION NEU UND KURZFRISTIG)
     Route: 048
  5. PIPAMPERONE HYDROCHLORIDE [Concomitant]
     Active Substance: PIPAMPERONE HYDROCHLORIDE
     Dosage: UNK UNK, PRN(BEDARFSMEDIKATION NEU UND KURZFRISTIG)
     Route: 048
  6. LAMOTRIGINE [Concomitant]
     Active Substance: LAMOTRIGINE
     Dosage: 150 MILLIGRAM, BID(150 MG - 0- 150 MG LANGFRISTIG)
     Route: 048

REACTIONS (4)
  - Flank pain [Recovering/Resolving]
  - Acute kidney injury [Recovering/Resolving]
  - Suicide attempt [Recovering/Resolving]
  - Overdose [Recovering/Resolving]

NARRATIVE: CASE EVENT DATE: 20210202
